FAERS Safety Report 4953094-9 (Version None)
Quarter: 2006Q1

REPORT INFORMATION
  Report Type: 
  Country: None (occurrence: None)
  Receive Date: 20060324
  Receipt Date: 20060314
  Transmission Date: 20060701
  Serious: Yes (Hospitalization)
  Sender: FDA-Public Use
  Company Number: 2006CG00497

PATIENT
  Age: 77 Year
  Sex: Female

DRUGS (3)
  1. ARIMIDEX [Suspect]
     Indication: BREAST CANCER
     Route: 048
     Dates: start: 20051215, end: 20060202
  2. NOROXIN [Suspect]
     Indication: URINARY TRACT INFECTION
     Route: 048
     Dates: start: 20060113, end: 20060116
  3. RADIOTHERAPY [Concomitant]
     Dates: start: 20051201

REACTIONS (7)
  - AGRANULOCYTOSIS [None]
  - ASTHENIA [None]
  - CONFUSIONAL STATE [None]
  - MUSCULAR WEAKNESS [None]
  - PYREXIA [None]
  - THROMBOCYTOPENIA [None]
  - VOMITING [None]
